FAERS Safety Report 6532613-5 (Version None)
Quarter: 2010Q1

REPORT INFORMATION
  Report Type: 
  Country: None (occurrence: None)
  Receive Date: 20100111
  Receipt Date: 20100107
  Transmission Date: 20100710
  Serious: Yes (Life-Threatening, Disabling, Other)
  Sender: FDA-Public Use
  Company Number: DE-ASTRAZENECA-2009SE33931

PATIENT
  Age: 753 Month
  Sex: Male
  Weight: 95 kg

DRUGS (2)
  1. ATACAND [Suspect]
     Indication: HYPERTENSION
     Route: 048
  2. ATACAND [Suspect]
     Indication: DRUG INTOLERANCE
     Route: 048

REACTIONS (1)
  - BRONCHOPNEUMONIA [None]
